FAERS Safety Report 12586967 (Version 1)
Quarter: 2016Q3

REPORT INFORMATION
  Report Type: Report from Study
  Country: JP (occurrence: JP)
  Receive Date: 20160725
  Receipt Date: 20160725
  Transmission Date: 20161109
  Serious: Yes (Death, Other)
  Sender: FDA-Public Use
  Company Number: JP-ROCHE-1746683

PATIENT
  Age: 76 Year
  Sex: Male

DRUGS (2)
  1. BEVACIZUMAB [Suspect]
     Active Substance: BEVACIZUMAB
     Indication: COLON CANCER
     Dosage: DOSAGE IS UNCERTAIN. ?OUTSIDE COURSE
     Route: 041
     Dates: start: 20151201, end: 2016
  2. CAPECITABINE. [Suspect]
     Active Substance: CAPECITABINE
     Indication: COLON CANCER
     Dosage: DOSAGE IS UNCERTAIN. ?OUTSIDE COURSE
     Route: 048
     Dates: start: 20151201, end: 2016

REACTIONS (7)
  - Large intestine perforation [Fatal]
  - Peritonitis [Fatal]
  - Duodenal perforation [Unknown]
  - Sepsis [Unknown]
  - Colitis ischaemic [Fatal]
  - Small intestinal perforation [Unknown]
  - Gastrointestinal necrosis [Fatal]

NARRATIVE: CASE EVENT DATE: 20160413
